FAERS Safety Report 13009778 (Version 4)
Quarter: 2017Q2

REPORT INFORMATION
  Report Type: Spontaneous
  Country: US (occurrence: US)
  Receive Date: 20161208
  Receipt Date: 20170526
  Transmission Date: 20170830
  Serious: Yes (Other)
  Sender: FDA-Public Use
  Company Number: US-BAYER-2016-228148

PATIENT
  Age: 32 Year
  Sex: Female

DRUGS (1)
  1. MIRENA [Suspect]
     Active Substance: LEVONORGESTREL
     Indication: CONTRACEPTION
     Dosage: 20 MCG/24HR, CONT
     Route: 015
     Dates: start: 20110330, end: 20160108

REACTIONS (16)
  - Medical device discomfort [Unknown]
  - Internal injury [None]
  - Device difficult to use [None]
  - Headache [None]
  - Loss of personal independence in daily activities [None]
  - Sexual dysfunction [None]
  - Abasia [None]
  - Menorrhagia [Not Recovered/Not Resolved]
  - Abdominal pain lower [Unknown]
  - Procedural pain [None]
  - Device dislocation [Unknown]
  - Depression [None]
  - Device issue [Unknown]
  - Genital haemorrhage [None]
  - Pelvic pain [Unknown]
  - Anxiety [None]

NARRATIVE: CASE EVENT DATE: 201103
